FAERS Safety Report 17108844 (Version 2)
Quarter: 2020Q1

REPORT INFORMATION
  Report Type: Report from Study
  Country: None (occurrence: US)
  Receive Date: 20191204
  Receipt Date: 20200118
  Transmission Date: 20200409
  Serious: Yes (Hospitalization, Other)
  Sender: FDA-Public Use
  Company Number: US-ABBVIE-19K-163-3172064-00

PATIENT
  Age: 56 Year
  Sex: Male

DRUGS (4)
  1. CORTISONE [Concomitant]
     Active Substance: CORTISONE
     Indication: ARTHRITIS
  2. ATORVASTATIN [Concomitant]
     Active Substance: ATORVASTATIN
     Indication: BLOOD CHOLESTEROL INCREASED
  3. HUMIRA [Suspect]
     Active Substance: ADALIMUMAB
     Indication: PSORIATIC ARTHROPATHY
     Route: 058
     Dates: start: 2012, end: 20191207
  4. IBUPROFEN. [Concomitant]
     Active Substance: IBUPROFEN
     Indication: ARTHRALGIA

REACTIONS (10)
  - Osteoarthritis [Unknown]
  - Impaired healing [Not Recovered/Not Resolved]
  - Foot operation [Not Recovered/Not Resolved]
  - Pain [Recovering/Resolving]
  - Sunburn [Recovering/Resolving]
  - Gait inability [Recovering/Resolving]
  - Hypertension [Recovering/Resolving]
  - Surgical failure [Recovering/Resolving]
  - Cartilage injury [Recovering/Resolving]
  - Arthritis [Not Recovered/Not Resolved]

NARRATIVE: CASE EVENT DATE: 201812
